FAERS Safety Report 4319334-4 (Version None)
Quarter: 2004Q1

REPORT INFORMATION
  Report Type: 
  Country: None (occurrence: None)
  Receive Date: 20040316
  Receipt Date: 20040305
  Transmission Date: 20041129
  Serious: No
  Sender: FDA-Public Use
  Company Number: 2004UW04316

PATIENT
  Age: 25 Year
  Sex: Male

DRUGS (3)
  1. SEROQUEL [Suspect]
     Dosage: 50 MG TID PO
     Route: 048
  2. ATIVAN [Concomitant]
  3. VALPROIC ACID [Concomitant]

REACTIONS (4)
  - DYSKINESIA [None]
  - HYPOAESTHESIA [None]
  - SPEECH DISORDER [None]
  - TONGUE PARALYSIS [None]
